FAERS Safety Report 18907402 (Version 1)
Quarter: 2021Q1

REPORT INFORMATION
  Report Type: Spontaneous
  Country: DE (occurrence: DE)
  Receive Date: 20210218
  Receipt Date: 20210218
  Transmission Date: 20210420
  Serious: Yes (Other)
  Sender: FDA-Public Use
  Company Number: DE-ABBVIE-21K-062-3775737-00

PATIENT
  Age: 40 Year
  Sex: Female
  Weight: 70 kg

DRUGS (7)
  1. HUMIRA [Suspect]
     Active Substance: ADALIMUMAB
     Indication: SPONDYLITIS
     Dosage: 40 MG/D
     Route: 058
     Dates: start: 20191124, end: 20200707
  2. PREDNISONE. [Suspect]
     Active Substance: PREDNISONE
     Indication: SPONDYLITIS
     Dosage: 12.5 MG/D, 0 TO 24.5 GESTATIONAL WEEK
     Route: 058
     Dates: start: 20191124, end: 20200515
  3. COLECALCIFEROL [Concomitant]
     Active Substance: CHOLECALCIFEROL
     Indication: PROPHYLAXIS
     Dosage: 20000 (IE/WK (BIS 1000 IE/D))/20000 IE/WK UNTIL GW 6 1/7 THEN REDUCTION TO 1000 IE/D
     Route: 048
     Dates: start: 20191124, end: 20200707
  4. UTROGEST [Concomitant]
     Active Substance: PROGESTERONE
     Indication: INFERTILITY FEMALE
     Dosage: 600 MG/D,1.5 TO 13.4 GESTATIONAL WEEK
     Route: 067
     Dates: start: 20191206, end: 20200227
  5. QUENSYL [Suspect]
     Active Substance: HYDROXYCHLOROQUINE
     Indication: SPONDYLITIS
     Dosage: 250 MG/D,0 TO 32.2GESTATIONAL WEEK
     Route: 048
     Dates: start: 20191124, end: 20200707
  6. ASPIRIN. [Concomitant]
     Active Substance: ASPIRIN
     Indication: INFERTILITY FEMALE
     Dosage: 100 MG/D, 2.3 TO 32.2 GESTATIONAL WEEK
     Route: 048
     Dates: start: 20191211, end: 20200707
  7. CICLOPOLI [Concomitant]
     Active Substance: CICLOPIROX
     Indication: ONYCHOMYCOSIS
     Dosage: 0 TO 3.5 GESTATIONAL WEEK
     Route: 061
     Dates: start: 20191124, end: 20191220

REACTIONS (7)
  - Foetal growth restriction [Unknown]
  - Placental insufficiency [Recovering/Resolving]
  - Maternal exposure during pregnancy [Unknown]
  - Live birth [Unknown]
  - Gestational hypertension [Recovered/Resolved]
  - Premature delivery [Unknown]
  - Gestational diabetes [Recovering/Resolving]
